FAERS Safety Report 5825604-0 (Version None)
Quarter: 2008Q3

REPORT INFORMATION
  Report Type: 
  Country: None (occurrence: None)
  Receive Date: 20080729
  Receipt Date: 20080723
  Transmission Date: 20090109
  Serious: Yes (Hospitalization)
  Sender: FDA-Public Use
  Company Number: A0739449A

PATIENT
  Age: 46 Year
  Sex: Male
  Weight: 111.4 kg

DRUGS (8)
  1. AVANDIA [Suspect]
     Dosage: 8MG PER DAY
     Route: 048
     Dates: start: 19990801, end: 20070501
  2. GLUCOPHAGE [Concomitant]
     Dates: start: 19870101, end: 20080601
  3. DIABETA [Concomitant]
     Dates: start: 19870101, end: 20080601
  4. ASPIRIN [Concomitant]
  5. AXID [Concomitant]
     Indication: ILL-DEFINED DISORDER
  6. NAPROXEN [Concomitant]
     Indication: ARTHRITIS
  7. ZOCOR [Concomitant]
  8. GLUCOVANCE [Concomitant]

REACTIONS (3)
  - ANGINA UNSTABLE [None]
  - ARTERIAL OCCLUSIVE DISEASE [None]
  - MYOCARDIAL INFARCTION [None]
